FAERS Safety Report 16978178 (Version 1)
Quarter: 2019Q4

REPORT INFORMATION
  Report Type: Spontaneous
  Country: US (occurrence: US)
  Receive Date: 20191031
  Receipt Date: 20191031
  Transmission Date: 20200122
  Serious: Yes (Hospitalization)
  Sender: FDA-Public Use
  Company Number: US-ZYDUS-042672

PATIENT
  Age: 50 Year
  Sex: Female

DRUGS (1)
  1. AMITRIPTYLINE [Suspect]
     Active Substance: AMITRIPTYLINE
     Indication: PRODUCT USED FOR UNKNOWN INDICATION
     Route: 065

REACTIONS (6)
  - Hypotension [Unknown]
  - Ventricular tachycardia [Recovered/Resolved]
  - Seizure [Unknown]
  - Toxicity to various agents [Unknown]
  - Overdose [Unknown]
  - Metabolic acidosis [Recovered/Resolved]
